FAERS Safety Report 7208590-0 (Version None)
Quarter: 2011Q1

REPORT INFORMATION
  Report Type: 
  Country: None (occurrence: None)
  Receive Date: 20110104
  Receipt Date: 20101227
  Transmission Date: 20110831
  Serious: Yes (Other)
  Sender: FDA-Public Use
  Company Number: US-SANOFI-AVENTIS-2010SA078355

PATIENT
  Age: 65 Year
  Sex: Female

DRUGS (2)
  1. ACTONEL [Concomitant]
     Route: 065
     Dates: end: 20101201
  2. MULTAQ [Suspect]
     Indication: ATRIAL FIBRILLATION
     Route: 048
     Dates: start: 20101222

REACTIONS (6)
  - HOT FLUSH [None]
  - DEPRESSION [None]
  - HEART RATE INCREASED [None]
  - NERVOUSNESS [None]
  - ATRIAL FIBRILLATION [None]
  - CIRCADIAN RHYTHM SLEEP DISORDER [None]
